FAERS Safety Report 5800501-5 (Version None)
Quarter: 2008Q3

REPORT INFORMATION
  Report Type: 
  Country: None (occurrence: None)
  Receive Date: 20080703
  Receipt Date: 20080623
  Transmission Date: 20090109
  Serious: Yes (Hospitalization)
  Sender: FDA-Public Use
  Company Number: B0526594A

PATIENT
  Age: 57 Year
  Sex: Female

DRUGS (6)
  1. SERETIDE DISKUS [Suspect]
     Indication: ASTHMA
     Dosage: 1PUFF TWICE PER DAY
     Route: 055
  2. SINGULAIR [Suspect]
     Indication: ASTHMA
     Dosage: 10MG PER DAY
     Route: 065
  3. VENTOLIN [Concomitant]
     Indication: ASTHMA
     Route: 055
  4. XYZAL [Concomitant]
     Route: 065
  5. ODRIK [Concomitant]
     Route: 065
  6. VENIRENE [Concomitant]
     Route: 065

REACTIONS (3)
  - HALLUCINATION, AUDITORY [None]
  - IRRITABILITY [None]
  - SENSORY DISTURBANCE [None]
